FAERS Safety Report 7249193-1 (Version None)
Quarter: 2011Q1

REPORT INFORMATION
  Report Type: 
  Country: None (occurrence: None)
  Receive Date: 20110128
  Receipt Date: 20101202
  Transmission Date: 20110831
  Serious: Yes (Hospitalization)
  Sender: FDA-Public Use
  Company Number: JP-BAYER-201015861BYL

PATIENT
  Age: 70 Year
  Sex: Male
  Weight: 53 kg

DRUGS (7)
  1. ACARBOSE [Suspect]
     Indication: DIABETES MELLITUS
     Route: 048
     Dates: start: 20010101
  2. ACARBOSE [Suspect]
     Dosage: 300 MG (DAILY DOSE), , ORAL
     Route: 048
  3. GLIBENCLAMIDE [Concomitant]
     Indication: DIABETES MELLITUS
     Route: 048
     Dates: start: 20010101
  4. HYDROCORTISONE [Concomitant]
     Dosage: GRADUALLY DECREASING
     Route: 065
  5. GLICLAZIDE [Concomitant]
     Indication: DIABETES MELLITUS
     Route: 048
     Dates: start: 19980101
  6. INSULIN [Concomitant]
     Indication: DIABETES MELLITUS
     Route: 058
  7. HYDROCORTISONE [Concomitant]
     Dosage: 15 MG (DAILY DOSE), , ORAL
     Route: 048

REACTIONS (5)
  - HYPOGLYCAEMIA [None]
  - BLOOD PRESSURE DECREASED [None]
  - MALAISE [None]
  - DECREASED APPETITE [None]
  - OESOPHAGEAL CARCINOMA [None]
